FAERS Safety Report 5752556-4 (Version None)
Quarter: 2008Q2

REPORT INFORMATION
  Report Type: 
  Country: None (occurrence: None)
  Receive Date: 20080529
  Receipt Date: 20080522
  Transmission Date: 20081010
  Serious: Yes (Other)
  Sender: FDA-Public Use
  Company Number: PHEH2008US04788

PATIENT
  Sex: Female

DRUGS (1)
  1. TEKTURNA [Suspect]
     Dosage: 150 MG, UNK
     Dates: start: 20080501

REACTIONS (2)
  - MUSCULAR WEAKNESS [None]
  - SMALL INTESTINAL RESECTION [None]
